FAERS Safety Report 13775679 (Version 1)
Quarter: 2017Q3

REPORT INFORMATION
  Report Type: Spontaneous
  Country: FR (occurrence: FR)
  Receive Date: 20170720
  Receipt Date: 20170720
  Transmission Date: 20171127
  Serious: Yes (Life-Threatening)
  Sender: FDA-Public Use
  Company Number: FR-PFIZER INC-1724705

PATIENT
  Age: 71 Year
  Sex: Female

DRUGS (6)
  1. CARBOPLATIN. [Suspect]
     Active Substance: CARBOPLATIN
     Indication: ENDOMETRIAL CANCER
     Dosage: 110 MG, FREQ: 1 DAY; INTERVAL:1
     Route: 042
     Dates: start: 20100809, end: 20100809
  2. PACLITAXEL EBEWE [Suspect]
     Active Substance: PACLITAXEL
     Indication: ENDOMETRIAL CANCER
     Dosage: 325 MG,FREQ: 1 DAY; INTERVAL:1
     Route: 042
     Dates: start: 20100809, end: 20100809
  3. METHYLPREDNISOLONE MERCK [Concomitant]
     Active Substance: METHYLPREDNISOLONE
     Indication: PREMEDICATION
     Dosage: 1 DF, FREQ: 1 DAY; INTERVAL:1
     Route: 042
     Dates: start: 20100809, end: 20100809
  4. POLARAMINE [Concomitant]
     Active Substance: DEXCHLORPHENIRAMINE MALEATE
     Indication: PREMEDICATION
     Dosage: 1 DF,FREQ: 1 DAY; INTERVAL:1
     Route: 042
     Dates: start: 20100809, end: 20100809
  5. AZANTAC [Suspect]
     Active Substance: RANITIDINE HYDROCHLORIDE
     Indication: PREMEDICATION
     Dosage: 50 MG, FREQ: 1 DAY; INTERVAL:1
     Route: 042
     Dates: start: 20100809, end: 20100809
  6. ZOPHREN /00955301/ [Suspect]
     Active Substance: ONDANSETRON
     Indication: PREMEDICATION
     Dosage: 1 DF, FREQ: 1 DAY; INTERVAL:1
     Route: 042
     Dates: start: 20100809, end: 20100809

REACTIONS (4)
  - Hypotension [Recovered/Resolved]
  - Cardio-respiratory arrest [Recovered/Resolved]
  - Bradycardia [Recovered/Resolved]
  - Skin reaction [Recovered/Resolved]

NARRATIVE: CASE EVENT DATE: 20100809
